FAERS Safety Report 18329361 (Version 1)
Quarter: 2020Q3

REPORT INFORMATION
  Report Type: Spontaneous
  Country: US (occurrence: US)
  Receive Date: 20200930
  Receipt Date: 20200930
  Transmission Date: 20201103
  Serious: No
  Sender: FDA-Public Use
  Company Number: US-GE HEALTHCARE LIFE SCIENCES-2020CSU002363

PATIENT

DRUGS (2)
  1. CLARISCAN [Suspect]
     Active Substance: GADOTERATE MEGLUMINE
     Indication: DIAGNOSTIC PROCEDURE
     Dosage: UNK, SINGLE
     Route: 065
  2. CLARISCAN [Suspect]
     Active Substance: GADOTERATE MEGLUMINE
     Indication: PRODUCT USED FOR UNKNOWN INDICATION

REACTIONS (1)
  - Nausea [Unknown]
